FAERS Safety Report 25574712 (Version 1)
Quarter: 2025Q3

REPORT INFORMATION
  Report Type: Spontaneous
  Country: AR (occurrence: AR)
  Receive Date: 20250718
  Receipt Date: 20250718
  Transmission Date: 20251020
  Serious: Yes (Death)
  Sender: GENMAB
  Company Number: AR-ABBVIE-6375457

PATIENT
  Age: 46 Year
  Sex: Female

DRUGS (1)
  1. EPKINLY [Suspect]
     Active Substance: EPCORITAMAB-BYSP
     Indication: Non-Hodgkin^s lymphoma
     Route: 058

REACTIONS (1)
  - Acute necrotising myelitis [Fatal]
